FAERS Safety Report 7240385-4 (Version None)
Quarter: 2011Q1

REPORT INFORMATION
  Report Type: 
  Country: None (occurrence: None)
  Receive Date: 20110124
  Receipt Date: 20110114
  Transmission Date: 20110831
  Serious: Yes (Other)
  Sender: FDA-Public Use
  Company Number: US-US-EMD SERONO, INC.-230651J09USA

PATIENT
  Sex: Female

DRUGS (7)
  1. VALIUM [Concomitant]
     Indication: MUSCULOSKELETAL DISCOMFORT
  2. REBIF [Suspect]
     Indication: MULTIPLE SCLEROSIS
     Route: 058
     Dates: start: 20040107
  3. ZANAFLEX [Concomitant]
     Indication: MULTIPLE SCLEROSIS
  4. PROVIGIL [Concomitant]
     Indication: MULTIPLE SCLEROSIS
  5. DETROL LA [Concomitant]
     Indication: INCONTINENCE
  6. AMPYRA [Concomitant]
     Indication: MULTIPLE SCLEROSIS
     Dates: start: 20100101
  7. MOTRIN [Concomitant]
     Indication: MULTIPLE SCLEROSIS

REACTIONS (5)
  - BLOOD PRESSURE FLUCTUATION [None]
  - MULTIPLE SCLEROSIS RELAPSE [None]
  - HYPOGLYCAEMIA [None]
  - LOSS OF CONSCIOUSNESS [None]
  - CORONARY ARTERY OCCLUSION [None]
